FAERS Safety Report 7339277-1 (Version None)
Quarter: 2011Q1

REPORT INFORMATION
  Report Type: 
  Country: None (occurrence: None)
  Receive Date: 20110228
  Receipt Date: 20110221
  Transmission Date: 20110831
  Serious: Yes (Other)
  Sender: FDA-Public Use
  Company Number: TPA2011A00756

PATIENT
  Age: 71 Year
  Sex: Male

DRUGS (2)
  1. UNKNOWN MEDICATIONS (ALL OTHER THERAPEUTIC PRODUCTS) [Concomitant]
  2. URLORIC (FEBUXOSTAT) [Suspect]
     Dosage: 40 MG, 1 IN 1 D, PER ORAL
     Route: 048

REACTIONS (1)
  - CONVULSION [None]
